FAERS Safety Report 23841104 (Version 3)
Quarter: 2024Q2

REPORT INFORMATION
  Report Type: Spontaneous
  Country: IL (occurrence: IL)
  Receive Date: 20240510
  Receipt Date: 20240517
  Transmission Date: 20240716
  Serious: Yes (Hospitalization, Other)
  Sender: FDA-Public Use
  Company Number: IL-MYLANLABS-2024M1033122

PATIENT
  Age: 67 Year
  Sex: Female
  Weight: 58.5 kg

DRUGS (1)
  1. VANCOMYCIN [Suspect]
     Active Substance: VANCOMYCIN
     Indication: Clostridium difficile infection
     Dosage: 125 MILLIGRAM,QID (4 PER DAY)
     Route: 048
     Dates: start: 20240405, end: 20240411

REACTIONS (2)
  - Treatment failure [Unknown]
  - Medication error [Unknown]
